FAERS Safety Report 8009945-7 (Version None)
Quarter: 2011Q4

REPORT INFORMATION
  Report Type: 
  Country: None (occurrence: None)
  Receive Date: 20111228
  Receipt Date: 20111216
  Transmission Date: 20120403
  Serious: Yes (Hospitalization)
  Sender: FDA-Public Use
  Company Number: PHEH2011US011914

PATIENT
  Sex: Female

DRUGS (5)
  1. DIOVAN [Suspect]
     Dosage: 160 MG, QD
     Route: 048
  2. DIOVAN [Suspect]
     Dosage: 160 MG, QD
  3. METOPROLOL SUCCINATE [Concomitant]
     Dosage: UNK UKN, UNK
  4. DIOVAN [Suspect]
     Dosage: 160 MG, QD
     Route: 048
  5. DIOVAN [Suspect]
     Dosage: 160 MG, QD
     Route: 048

REACTIONS (13)
  - WEIGHT DECREASED [None]
  - CHEST DISCOMFORT [None]
  - JOINT SWELLING [None]
  - ABDOMINAL PAIN UPPER [None]
  - TINNITUS [None]
  - DECREASED APPETITE [None]
  - COUGH [None]
  - OEDEMA PERIPHERAL [None]
  - BACK PAIN [None]
  - HEADACHE [None]
  - DYSPNOEA [None]
  - OROPHARYNGEAL PAIN [None]
  - PALPITATIONS [None]
